FAERS Safety Report 5827257-4 (Version None)
Quarter: 2008Q3

REPORT INFORMATION
  Report Type: 
  Country: None (occurrence: None)
  Receive Date: 20080725
  Receipt Date: 20080711
  Transmission Date: 20090109
  Serious: Yes (Other)
  Sender: FDA-Public Use
  Company Number: BR-1166770

PATIENT
  Age: 6 Year
  Sex: Male

DRUGS (3)
  1. FLAREX [Suspect]
     Indication: CONJUNCTIVITIS ALLERGIC
     Dosage: OPHTHALMIC
     Route: 047
  2. SINGULAIR [Concomitant]
  3. RELESTAT (EPINASTINE HYDROCHLORIDE) [Concomitant]

REACTIONS (4)
  - BLOOD CORTISOL DECREASED [None]
  - CUSHING'S SYNDROME [None]
  - GROWTH RETARDATION [None]
  - WEIGHT DECREASED [None]
